FAERS Safety Report 11418704 (Version 2)
Quarter: 2018Q4

REPORT INFORMATION
  Report Type: Spontaneous
  Country: GB (occurrence: GB)
  Receive Date: 20150826
  Receipt Date: 20181023
  Transmission Date: 20190204
  Serious: Yes (Hospitalization, Disabling, Other)
  Sender: FDA-Public Use
  Company Number: GB-ACCORD-033104

PATIENT
  Age: 21 Year
  Sex: Female
  Weight: 60.77 kg

DRUGS (1)
  1. SERTRALINE [Suspect]
     Active Substance: SERTRALINE HYDROCHLORIDE
     Indication: PRODUCT USED FOR UNKNOWN INDICATION
     Dosage: PATIENT TOOK SERTRALINE OF 50 MG, 100 MG AND 150 MG AT DIFFERENT TIME INTERVALS
     Route: 048
     Dates: start: 20171201

REACTIONS (16)
  - Flat affect [Not Recovered/Not Resolved]
  - Dyskinesia [Recovered/Resolved with Sequelae]
  - Somnolence [Recovered/Resolved]
  - Intentional self-injury [Recovered/Resolved with Sequelae]
  - Substance use [Not Recovered/Not Resolved]
  - Apathy [Recovered/Resolved with Sequelae]
  - Anorgasmia [Not Recovered/Not Resolved]
  - Suicidal ideation [Recovered/Resolved with Sequelae]
  - Withdrawal syndrome [Unknown]
  - Drug ineffective [Unknown]
  - Alcohol abuse [Recovered/Resolved]
  - Abnormal dreams [Not Recovered/Not Resolved]
  - Hypersomnia [Recovered/Resolved]
  - Antisocial behaviour [Recovered/Resolved with Sequelae]
  - Suicidal behaviour [Recovered/Resolved]
  - Anger [Recovered/Resolved]

NARRATIVE: CASE EVENT DATE: 20171203
